FAERS Safety Report 16206564 (Version 1)
Quarter: 2019Q2

REPORT INFORMATION
  Report Type: Spontaneous
  Country: DE (occurrence: DE)
  Receive Date: 20190417
  Receipt Date: 20190417
  Transmission Date: 20190711
  Serious: Yes (Other)
  Sender: FDA-Public Use
  Company Number: DE-TEVA-2019-DE-1038162

PATIENT
  Age: 84 Year
  Sex: Male
  Weight: 70 kg

DRUGS (1)
  1. TAMOXIFEN 20 MG [Suspect]
     Active Substance: TAMOXIFEN
     Dosage: 20 MILLIGRAM DAILY;  TAMOXIFEN TGL.
     Route: 048
     Dates: start: 20170630

REACTIONS (1)
  - Osteonecrosis [Not Recovered/Not Resolved]

NARRATIVE: CASE EVENT DATE: 20181201
